FAERS Safety Report 17186543 (Version 1)
Quarter: 2019Q4

REPORT INFORMATION
  Report Type: Spontaneous
  Country: US (occurrence: US)
  Receive Date: 20191220
  Receipt Date: 20191220
  Transmission Date: 20200122
  Serious: Yes (Other)
  Sender: FDA-Public Use
  Company Number: US-BIOGEN-2019BI00818618

PATIENT
  Age: 0 Day
  Sex: Male

DRUGS (2)
  1. TYSABRI [Suspect]
     Active Substance: NATALIZUMAB
     Dosage: INFUSED OVER 1 HOUR
     Route: 064
     Dates: start: 201911
  2. TYSABRI [Suspect]
     Active Substance: NATALIZUMAB
     Indication: PATERNAL EXPOSURE TIMING UNSPECIFIED
     Dosage: INFUSED OVER 1 HOUR
     Route: 064
     Dates: start: 201401, end: 201503

REACTIONS (3)
  - Hydrocephalus [Recovered/Resolved]
  - Plagiocephaly [Recovered/Resolved]
  - Paternal exposure before pregnancy [Unknown]

NARRATIVE: CASE EVENT DATE: 20151025
